FAERS Safety Report 9770323 (Version 1)
Quarter: 2013Q4

REPORT INFORMATION
  Report Type: Spontaneous
  Country: US (occurrence: US)
  Receive Date: 20131218
  Receipt Date: 20131218
  Transmission Date: 20140711
  Serious: Yes (Death, Hospitalization, Other)
  Sender: FDA-Public Use
  Company Number: US-GILEAD-2013-0090145

PATIENT
  Age: 56 Year
  Sex: Male
  Weight: 109 kg

DRUGS (6)
  1. LETAIRIS [Suspect]
     Indication: PULMONARY HYPERTENSION
     Dosage: 10 MG, QD
     Route: 048
     Dates: start: 201106
  2. PROPRANOLOL [Concomitant]
  3. FLONASE                            /00972202/ [Concomitant]
  4. SILDENAFIL [Concomitant]
  5. FUROSEMIDE [Concomitant]
  6. KCL [Concomitant]

REACTIONS (5)
  - Death [Fatal]
  - Gastrointestinal haemorrhage [Unknown]
  - Loss of consciousness [Unknown]
  - Dysstasia [Unknown]
  - Asthenia [Unknown]
